FAERS Safety Report 8314463-2 (Version None)
Quarter: 2012Q2

REPORT INFORMATION
  Report Type: 
  Country: None (occurrence: None)
  Receive Date: 20120426
  Receipt Date: 20120417
  Transmission Date: 20120825
  Serious: Yes (Other)
  Sender: FDA-Public Use
  Company Number: DE-ACTELION-A-US2012-64439

PATIENT

DRUGS (1)
  1. VENTAVIS [Suspect]
     Indication: PULMONARY ARTERIAL HYPERTENSION
     Dosage: 2.5 ?G, SINGLE
     Route: 055
     Dates: start: 20120413, end: 20120413

REACTIONS (2)
  - UNEVALUABLE EVENT [None]
  - LOSS OF CONSCIOUSNESS [None]
